FAERS Safety Report 4936548-0 (Version None)
Quarter: 2006Q1

REPORT INFORMATION
  Report Type: 
  Country: None (occurrence: None)
  Receive Date: 20060307
  Receipt Date: 20050727
  Transmission Date: 20060701
  Serious: Yes (Hospitalization)
  Sender: FDA-Public Use
  Company Number: US-MERCK-0507USA04321

PATIENT
  Age: 63 Year
  Sex: Male
  Weight: 55 kg

DRUGS (4)
  1. VIOXX [Suspect]
     Route: 048
     Dates: start: 19990901, end: 20010901
  2. VIOXX [Suspect]
     Route: 048
  3. TYLENOL (CAPLET) [Concomitant]
     Route: 065
  4. GLYBURIDE [Suspect]
     Route: 065

REACTIONS (24)
  - ACUTE CORONARY SYNDROME [None]
  - ANGINA PECTORIS [None]
  - ARTERIOSCLEROSIS CORONARY ARTERY [None]
  - BRADYCARDIA [None]
  - CARDIAC FAILURE CONGESTIVE [None]
  - CHEST PAIN [None]
  - CONSTIPATION [None]
  - CORONARY ARTERY DISEASE [None]
  - HERNIA [None]
  - HIATUS HERNIA [None]
  - HYPERLIPIDAEMIA [None]
  - HYPOGLYCAEMIA [None]
  - HYPOTENSION [None]
  - INTERMITTENT CLAUDICATION [None]
  - ISCHAEMIC CARDIOMYOPATHY [None]
  - MYOCARDIAL INFARCTION [None]
  - NOCTURIA [None]
  - PARATHYROID TUMOUR BENIGN [None]
  - RENAL FAILURE [None]
  - RENAL VESSEL DISORDER [None]
  - RHINITIS ALLERGIC [None]
  - SEASONAL ALLERGY [None]
  - THYROID DISORDER [None]
  - VENTRICULAR TACHYCARDIA [None]
